FAERS Safety Report 22306852 (Version 1)
Quarter: 2023Q2

REPORT INFORMATION
  Report Type: Spontaneous
  Country: FR (occurrence: None)
  Receive Date: 20230511
  Receipt Date: 20230511
  Transmission Date: 20230721
  Serious: Yes (Hospitalization)
  Sender: FDA-Public Use
  Company Number: None

PATIENT
  Age: 78 Year
  Sex: Male
  Weight: 68 kg

DRUGS (4)
  1. STALEVO [Suspect]
     Active Substance: CARBIDOPA\ENTACAPONE\LEVODOPA
     Indication: Parkinson^s disease
     Dosage: 1-1-1-1?STRENGTH: (175/43.75/200) MG
     Dates: end: 20230322
  2. STALEVO [Suspect]
     Active Substance: CARBIDOPA\ENTACAPONE\LEVODOPA
  3. PRAMIPEXOLE [Suspect]
     Active Substance: PRAMIPEXOLE
     Indication: Parkinson^s disease
     Dosage: DOSE: 1-0-0
     Dates: end: 20230329
  4. AMANTADINE HYDROCHLORIDE [Suspect]
     Active Substance: AMANTADINE HYDROCHLORIDE
     Indication: Parkinson^s disease
     Dosage: DOSE: 1 TO 10 A.M. 1 TO 4 P.M.?STRENGTH: 100 MG
     Dates: end: 20230322

REACTIONS (2)
  - Dyskinesia [Recovered/Resolved]
  - Pruritus [Recovered/Resolved]

NARRATIVE: CASE EVENT DATE: 20230321
